FAERS Safety Report 25968359 (Version 3)
Quarter: 2025Q4

REPORT INFORMATION
  Report Type: Spontaneous
  Country: US (occurrence: US)
  Receive Date: 20251028
  Receipt Date: 20251120
  Transmission Date: 20260119
  Serious: Yes (Other)
  Sender: AJANTA PHARMA USA INC
  Company Number: US-AJANTA-2025AJA00141

PATIENT
  Age: 63 Year
  Sex: Female
  Weight: 175 kg

DRUGS (12)
  1. DULOXETINE [Suspect]
     Active Substance: DULOXETINE
     Indication: Depression
     Route: 048
     Dates: start: 20250905, end: 202510
  2. DULOXETINE [Suspect]
     Active Substance: DULOXETINE
     Indication: Fibromyalgia
  3. Entresto (sacubitril and valsartan) [Concomitant]
     Indication: Coronary artery disease
     Dosage: 24-26 MG
  4. ASPIRIN [Concomitant]
     Active Substance: ASPIRIN
  5. JARDIANCE [Concomitant]
     Active Substance: EMPAGLIFLOZIN
  6. PRASUGREL [Concomitant]
     Active Substance: PRASUGREL
  7. SPIRONOLACTONE [Concomitant]
     Active Substance: SPIRONOLACTONE
  8. HYDROXYCHLOROQUINE [Concomitant]
     Active Substance: HYDROXYCHLOROQUINE
  9. FUROSEMIDE [Concomitant]
     Active Substance: FUROSEMIDE
  10. Atorvastin Calcium [Concomitant]
  11. METOPROLOL [Concomitant]
     Active Substance: METOPROLOL
  12. BUSPIRONE [Concomitant]
     Active Substance: BUSPIRONE HYDROCHLORIDE

REACTIONS (8)
  - Suicidal ideation [Unknown]
  - Loss of personal independence in daily activities [Recovered/Resolved]
  - Withdrawal syndrome [Unknown]
  - Irritability [Unknown]
  - Malaise [Recovered/Resolved]
  - Disturbance in attention [Recovered/Resolved]
  - Drug ineffective [Unknown]
  - Product substitution issue [Unknown]

NARRATIVE: CASE EVENT DATE: 20250907
